FAERS Safety Report 13765671 (Version 1)
Quarter: 2017Q3

REPORT INFORMATION
  Report Type: Spontaneous
  Country: HR (occurrence: HR)
  Receive Date: 20170718
  Receipt Date: 20170718
  Transmission Date: 20171127
  Serious: Yes (Other)
  Sender: FDA-Public Use
  Company Number: HR-TEVA-786315ACC

PATIENT
  Sex: Male

DRUGS (4)
  1. MISAR (ALPRAZOLAM) [Suspect]
     Active Substance: ALPRAZOLAM
     Route: 048
     Dates: start: 20170406, end: 20170406
  2. VELAFAX [Suspect]
     Active Substance: VENLAFAXINE HYDROCHLORIDE
     Route: 048
     Dates: start: 20170406, end: 20170406
  3. PRAZINE [Suspect]
     Active Substance: PROMAZINE HYDROCHLORIDE
     Route: 048
     Dates: start: 20170406, end: 20170406
  4. PREGABALIN. [Suspect]
     Active Substance: PREGABALIN
     Route: 048
     Dates: start: 20170406, end: 20170406

REACTIONS (2)
  - Overdose [Unknown]
  - Loss of consciousness [Unknown]

NARRATIVE: CASE EVENT DATE: 20170406
